FAERS Safety Report 11604094 (Version 1)
Quarter: 2015Q4

REPORT INFORMATION
  Report Type: Spontaneous
  Country: US (occurrence: None)
  Receive Date: 20151006
  Receipt Date: 20151006
  Transmission Date: 20160304
  Serious: Yes (Hospitalization)
  Sender: FDA-Public Use
  Company Number: None

PATIENT
  Age: 62 Year
  Sex: Male
  Weight: 73.2 kg

DRUGS (2)
  1. NITROGLYCERIN. [Suspect]
     Active Substance: NITROGLYCERIN
     Indication: AORTIC STENOSIS
     Route: 060
     Dates: start: 20150921, end: 20150921
  2. NITROGLYCERIN. [Suspect]
     Active Substance: NITROGLYCERIN
     Indication: CHEST PAIN
     Route: 060
     Dates: start: 20150921, end: 20150921

REACTIONS (1)
  - Hypotension [None]

NARRATIVE: CASE EVENT DATE: 20150921
